FAERS Safety Report 18861717 (Version 5)
Quarter: 2021Q3

REPORT INFORMATION
  Report Type: Report from Study
  Country: CO (occurrence: CO)
  Receive Date: 20210208
  Receipt Date: 20210816
  Transmission Date: 20211014
  Serious: Yes (Hospitalization, Other)
  Sender: FDA-Public Use
  Company Number: NVSC2021CO011540

PATIENT
  Age: 34 Year
  Sex: Female
  Weight: 60 kg

DRUGS (4)
  1. PREDNISOLONE. [Concomitant]
     Active Substance: PREDNISOLONE
     Indication: PRODUCT USED FOR UNKNOWN INDICATION
     Dosage: UNK
     Route: 065
  2. REVOLADE [Suspect]
     Active Substance: ELTROMBOPAG OLAMINE
     Indication: IMMUNE THROMBOCYTOPENIA
     Dosage: 100 MG, QD (2 TABLETS OF 50 MG)
     Route: 048
     Dates: start: 20201126
  3. REVOLADE [Suspect]
     Active Substance: ELTROMBOPAG OLAMINE
     Dosage: 100 MG, QD (2 TABLETS OF 50 MG)
     Route: 048
  4. REVOLADE [Suspect]
     Active Substance: ELTROMBOPAG OLAMINE
     Dosage: 50 MG, QD
     Route: 048
     Dates: start: 20201126

REACTIONS (11)
  - Gingival bleeding [Recovered/Resolved]
  - Platelet count decreased [Unknown]
  - Haematemesis [Unknown]
  - Petechiae [Unknown]
  - Mouth haemorrhage [Unknown]
  - Product dose omission issue [Unknown]
  - Product distribution issue [Unknown]
  - Incorrect dose administered [Unknown]
  - Haemorrhage [Unknown]
  - Nervousness [Unknown]
  - Condition aggravated [Unknown]

NARRATIVE: CASE EVENT DATE: 20210103
